FAERS Safety Report 18786165 (Version 2)
Quarter: 2022Q1

REPORT INFORMATION
  Report Type: Spontaneous
  Country: CA (occurrence: CA)
  Receive Date: 20210125
  Receipt Date: 20220131
  Transmission Date: 20220423
  Serious: Yes (Other)
  Sender: FDA-Public Use
  Company Number: CA-HLS-202001524

PATIENT
  Sex: Female

DRUGS (1)
  1. CLOZAPINE [Suspect]
     Active Substance: CLOZAPINE
     Indication: Product used for unknown indication
     Route: 065

REACTIONS (5)
  - Pneumothorax [Unknown]
  - Adverse drug reaction [Unknown]
  - Weight decreased [Unknown]
  - Rash [Unknown]
  - Urinary tract infection [Unknown]
